FAERS Safety Report 20159307 (Version 1)
Quarter: 2021Q4

REPORT INFORMATION
  Report Type: Spontaneous
  Country: BR (occurrence: BR)
  Receive Date: 20211208
  Receipt Date: 20211208
  Transmission Date: 20220303
  Serious: Yes (Hospitalization, Other)
  Sender: FDA-Public Use
  Company Number: BR-GLAXOSMITHKLINE-BR2016GSK109018

PATIENT
  Age: 42 Year
  Sex: Female
  Weight: 65 kg

DRUGS (2)
  1. BENLYSTA [Suspect]
     Active Substance: BELIMUMAB
     Indication: Systemic lupus erythematosus
     Dosage: 650 MG, UNK
     Dates: start: 20150928
  2. BENLYSTA [Suspect]
     Active Substance: BELIMUMAB
     Dosage: 120 MG, EVERY 28 DAYS
     Dates: start: 20150928

REACTIONS (14)
  - COVID-19 [Recovered/Resolved]
  - Sinusitis [Unknown]
  - Influenza [Unknown]
  - Cough [Unknown]
  - Nasopharyngitis [Unknown]
  - Pyrexia [Unknown]
  - Chills [Unknown]
  - Nasal inflammation [Recovered/Resolved]
  - Nasal operation [Recovered/Resolved]
  - Overdose [Recovered/Resolved]
  - Inappropriate schedule of product administration [Recovered/Resolved]
  - Circumstance or information capable of leading to medication error [Recovered/Resolved]
  - Product dose omission issue [Not Recovered/Not Resolved]
  - Inappropriate schedule of product administration [Not Recovered/Not Resolved]

NARRATIVE: CASE EVENT DATE: 20190612
